FAERS Safety Report 9489261 (Version 1)
Quarter: 2013Q3

REPORT INFORMATION
  Report Type: Spontaneous
  Country: US (occurrence: US)
  Receive Date: 20130829
  Receipt Date: 20130829
  Transmission Date: 20140515
  Serious: Yes (Other)
  Sender: FDA-Public Use
  Company Number: US-PFIZER INC-2013248704

PATIENT
  Age: 47 Year
  Sex: Female
  Weight: 64.85 kg

DRUGS (2)
  1. LYRICA [Suspect]
     Indication: FIBROMYALGIA
     Dosage: 75 MG, 2X/DAY
     Route: 048
     Dates: end: 2013
  2. HYDROCODONE [Concomitant]
     Dosage: UNK

REACTIONS (1)
  - Intervertebral disc degeneration [Unknown]
